FAERS Safety Report 17106469 (Version 1)
Quarter: 2019Q4

REPORT INFORMATION
  Report Type: Spontaneous
  Country: US (occurrence: US)
  Receive Date: 20191203
  Receipt Date: 20191203
  Transmission Date: 20200122
  Serious: Yes (Other)
  Sender: FDA-Public Use
  Company Number: US-SUN PHARMACEUTICAL INDUSTRIES LTD-2019R1-229152

PATIENT
  Sex: Male
  Weight: 88.44 kg

DRUGS (1)
  1. METOPROLOL. [Suspect]
     Active Substance: METOPROLOL
     Indication: TACHYCARDIA
     Dosage: 25 MILLIGRAM, BID
     Route: 065

REACTIONS (4)
  - Fatigue [Unknown]
  - Dizziness [Unknown]
  - Heart rate decreased [Unknown]
  - Loss of consciousness [Unknown]
